FAERS Safety Report 11885665 (Version 1)
Quarter: 2016Q1

REPORT INFORMATION
  Report Type: Spontaneous
  Country: CA (occurrence: CA)
  Receive Date: 20160104
  Receipt Date: 20160104
  Transmission Date: 20160526
  Serious: Yes (Other)
  Sender: FDA-Public Use
  Company Number: CA-TEVA-621933ACC

PATIENT
  Age: 74 Year
  Sex: Female
  Weight: 79.45 kg

DRUGS (38)
  1. BETADERM CRM 0.1% [Concomitant]
  2. DIPHENHYDRAMINE. [Concomitant]
     Active Substance: DIPHENHYDRAMINE
  3. HYDERM [Concomitant]
  4. JAMP-VITAMIN D [Concomitant]
  5. PMS-IPRATROPIUM (2ML UNIT DOSE) [Concomitant]
  6. PMS-SALBUTAMOL RESPIRATOR SOLUTION [Concomitant]
  7. MONTELUKAST [Suspect]
     Active Substance: MONTELUKAST SODIUM
     Indication: HYPERSENSITIVITY
     Dosage: 10 MILLIGRAM DAILY;
     Route: 048
  8. DICLOFENAC [Concomitant]
     Active Substance: DICLOFENAC
  9. MONTELUKAST [Suspect]
     Active Substance: MONTELUKAST SODIUM
     Indication: ASTHMA PROPHYLAXIS
  10. EXTRA STRENGTH BENADRYL ALLERGY NIGHTTIME [Concomitant]
  11. GRAVOL [Concomitant]
     Active Substance: DIMENHYDRINATE
  12. HYDROMORPH CONTIN-CONTROLLED CAP - 6MG [Concomitant]
  13. JAMP-MAGNESIUM 250 MG [Concomitant]
  14. LOSEC CAPSULES 20MG [Concomitant]
  15. PATANOL OPHTHALMIC SOLUTION [Concomitant]
     Route: 047
  16. SYMBICORT 200 TURBUHALER [Concomitant]
  17. TARO-TERCONAZOLE CREAM [Concomitant]
  18. VENTOLIN [Concomitant]
     Active Substance: ALBUTEROL SULFATE
  19. FLOVENT [Concomitant]
     Active Substance: FLUTICASONE PROPIONATE
  20. MYLAN-BECLO AQ [Concomitant]
  21. PMS-HYDROMORPHONE TAB 2MG [Concomitant]
  22. PULMICORT TURBUHALER [Concomitant]
     Active Substance: BUDESONIDE
  23. SOLU-MEDROL [Concomitant]
     Active Substance: METHYLPREDNISOLONE SODIUM SUCCINATE
  24. TEVA-RISEDRONATE [Concomitant]
     Active Substance: RISEDRONATE SODIUM
  25. AMOXICILLIN. [Concomitant]
     Active Substance: AMOXICILLIN
  26. APO-DOMPERIDONE -TAB 10MG [Concomitant]
  27. ATROVENT HFA [Concomitant]
     Active Substance: IPRATROPIUM BROMIDE
  28. AVAPRO [Concomitant]
     Active Substance: IRBESARTAN
  29. EPIPEN [Concomitant]
     Active Substance: EPINEPHRINE
  30. JAMP-CALCIUM + VITAMIN D 400 IU TABLETS [Concomitant]
  31. CETIRIZINE [Concomitant]
     Active Substance: CETIRIZINE HYDROCHLORIDE
  32. DOXYCYCLINE. [Concomitant]
     Active Substance: DOXYCYCLINE
  33. TOPICORT [Concomitant]
     Active Substance: DESOXIMETASONE
  34. DEMEROL 50 MG/ML (SINGLE USE, PRESERVATIVE FREE) [Concomitant]
  35. DETROL LA [Concomitant]
     Active Substance: TOLTERODINE TARTRATE
  36. ATIVAN SUBLINGUAL TABLETS [Concomitant]
  37. COLESTID TABLETS 1 G [Concomitant]
  38. MEDROL [Concomitant]
     Active Substance: METHYLPREDNISOLONE

REACTIONS (7)
  - Palpitations [Recovered/Resolved]
  - Abdominal pain upper [Recovered/Resolved]
  - Throat irritation [Recovered/Resolved]
  - Dysphonia [Recovered/Resolved]
  - Dysphagia [Recovered/Resolved]
  - Hypoaesthesia [Recovered/Resolved]
  - Pruritus [Recovered/Resolved]
